FAERS Safety Report 12853223 (Version 1)
Quarter: 2016Q4

REPORT INFORMATION
  Report Type: Spontaneous
  Country: US (occurrence: US)
  Receive Date: 20161017
  Receipt Date: 20161017
  Transmission Date: 20170207
  Serious: No
  Sender: FDA-Public Use
  Company Number: US-JAZZ-2016-US-014334

PATIENT
  Sex: Female

DRUGS (24)
  1. VITAMIN D [Concomitant]
     Active Substance: CHOLECALCIFEROL
  2. MULTIVITAMINS [Concomitant]
     Active Substance: VITAMINS
  3. NUVIGIL [Concomitant]
     Active Substance: ARMODAFINIL
  4. ZOCOR [Concomitant]
     Active Substance: SIMVASTATIN
  5. ACCOLATE [Concomitant]
     Active Substance: ZAFIRLUKAST
  6. ALBUTEROL SULFATE. [Concomitant]
     Active Substance: ALBUTEROL SULFATE
  7. PROAIR HFA [Concomitant]
     Active Substance: ALBUTEROL SULFATE
  8. SERTRALINE HCL [Concomitant]
     Active Substance: SERTRALINE HYDROCHLORIDE
  9. BROVANA [Concomitant]
     Active Substance: ARFORMOTEROL TARTRATE
  10. LINZESS [Concomitant]
     Active Substance: LINACLOTIDE
  11. XYREM [Suspect]
     Active Substance: SODIUM OXYBATE
     Indication: NARCOLEPSY
     Dosage: 2.25 G, BID
     Route: 048
     Dates: start: 201509, end: 201510
  12. TYLENOL SINUS [Concomitant]
     Active Substance: ACETAMINOPHEN\DIPHENHYDRAMINE
  13. IBUPROFEN. [Concomitant]
     Active Substance: IBUPROFEN
  14. CLARITIN [Concomitant]
     Active Substance: LORATADINE
  15. ROBAXIN [Concomitant]
     Active Substance: METHOCARBAMOL
  16. FORADIL [Concomitant]
     Active Substance: FORMOTEROL FUMARATE
  17. SPIRIVA [Concomitant]
     Active Substance: TIOTROPIUM BROMIDE MONOHYDRATE
  18. XYREM [Suspect]
     Active Substance: SODIUM OXYBATE
     Dosage: DOSE ADJUSTMENTS
     Route: 048
     Dates: start: 201510, end: 201512
  19. SINGULAIR [Concomitant]
     Active Substance: MONTELUKAST SODIUM
  20. BUDESONIDE. [Concomitant]
     Active Substance: BUDESONIDE
  21. GABAPENTIN. [Concomitant]
     Active Substance: GABAPENTIN
  22. XYREM [Suspect]
     Active Substance: SODIUM OXYBATE
     Dosage: 4.5 G, BID
     Route: 048
     Dates: start: 201512
  23. AZELASTINE [Concomitant]
     Active Substance: AZELASTINE
  24. VIIBRYD [Concomitant]
     Active Substance: VILAZODONE HYDROCHLORIDE

REACTIONS (5)
  - Pre-existing condition improved [Unknown]
  - Therapeutic response unexpected [Unknown]
  - Blood cholesterol increased [Unknown]
  - Sinus disorder [Recovering/Resolving]
  - Pain [Recovering/Resolving]

NARRATIVE: CASE EVENT DATE: 2015
